FAERS Safety Report 20763680 (Version 1)
Quarter: 2022Q2

REPORT INFORMATION
  Report Type: Spontaneous
  Country: US (occurrence: None)
  Receive Date: 20220428
  Receipt Date: 20220428
  Transmission Date: 20220721
  Serious: Yes (Death)
  Sender: FDA-Public Use
  Company Number: None

PATIENT
  Age: 70 Year
  Sex: Male
  Weight: 69.4 kg

DRUGS (25)
  1. IBRANCE [Suspect]
     Active Substance: PALBOCICLIB
     Indication: Lip and/or oral cavity cancer
     Dosage: OTHER FREQUENCY : 3W, 1W OFF;?
     Route: 048
     Dates: end: 202203
  2. ACETAMINOPHEN [Concomitant]
     Active Substance: ACETAMINOPHEN
  3. Amiodarone HCI [Concomitant]
  4. CARVEDILOL [Concomitant]
     Active Substance: CARVEDILOL
  5. FENOFIBRATE [Concomitant]
     Active Substance: FENOFIBRATE
  6. GABAPENTIN [Concomitant]
  7. Glucocard Vital Test [Concomitant]
  8. hydralazine HCI [Concomitant]
  9. ACETAMINOPHEN\HYDROCODONE [Concomitant]
     Active Substance: ACETAMINOPHEN\HYDROCODONE
  10. ISOSORBIDE MONONITRATE [Concomitant]
     Active Substance: ISOSORBIDE MONONITRATE
  11. JARDIANCE [Concomitant]
     Active Substance: EMPAGLIFLOZIN
  12. Mapap Aceaminophen Extra Str [Concomitant]
  13. PANTOPRAZOLE SODIUM [Concomitant]
     Active Substance: PANTOPRAZOLE SODIUM
  14. REGLAN [Concomitant]
     Active Substance: METOCLOPRAMIDE HYDROCHLORIDE
  15. Renal-Vite [Concomitant]
  16. ROSUVASTATIN CALCIUM [Concomitant]
     Active Substance: ROSUVASTATIN CALCIUM
  17. SENNA LAXATIVE [Concomitant]
     Active Substance: SENNOSIDES
  18. TAMSULOSIN HYDROCHLORIDE [Concomitant]
     Active Substance: TAMSULOSIN HYDROCHLORIDE
  19. Toujeo Max [Concomitant]
  20. SOLOSTAR [Concomitant]
     Active Substance: DEVICE
  21. TRULICITY [Concomitant]
     Active Substance: DULAGLUTIDE
  22. VASCEPA [Concomitant]
     Active Substance: ICOSAPENT ETHYL
  23. VITAMIN D3 [Concomitant]
     Active Substance: CHOLECALCIFEROL
  24. XARELTO [Concomitant]
     Active Substance: RIVAROXABAN
  25. ZOFRAN [Concomitant]
     Active Substance: ONDANSETRON HYDROCHLORIDE

REACTIONS (1)
  - Death [None]
